FAERS Safety Report 7883516-5 (Version None)
Quarter: 2011Q4

REPORT INFORMATION
  Report Type: 
  Country: None (occurrence: None)
  Receive Date: 20111102
  Receipt Date: 20111028
  Transmission Date: 20120403
  Serious: Yes (Death, Hospitalization)
  Sender: FDA-Public Use
  Company Number: US-ASTELLAS-2011US006862

PATIENT
  Age: 44 Year
  Sex: Female
  Weight: 50 kg

DRUGS (2)
  1. ERLOTINIB HYDROCHLORIDE [Suspect]
     Indication: NON-SMALL CELL LUNG CANCER
     Dosage: 150 MG, UID/QD
     Route: 048
     Dates: start: 20110427, end: 20111004
  2. MK-2206 [Suspect]
     Indication: NON-SMALL CELL LUNG CANCER
     Dosage: 45 MG, QOD
     Route: 048
     Dates: start: 20110427, end: 20111004

REACTIONS (5)
  - HYPOXIA [None]
  - PLEURAL EFFUSION [None]
  - DYSPNOEA [None]
  - DEATH [None]
  - LUNG INFECTION [None]
